FAERS Safety Report 10311635 (Version 2)
Quarter: 2014Q3

REPORT INFORMATION
  Report Type: Spontaneous
  Country: US (occurrence: None)
  Receive Date: 20140715
  Receipt Date: 20140818
  Transmission Date: 20150326
  Serious: Yes (Hospitalization, Other)
  Sender: FDA-Public Use
  Company Number: 2014JUB00034

PATIENT
  Age: 58 Year
  Sex: Female
  Weight: 65.8 kg

DRUGS (7)
  1. BETASERON INJECTION [Concomitant]
  2. CYCLOBENZAPRINE HCL [Suspect]
     Active Substance: CYCLOBENZAPRINE HYDROCHLORIDE
     Indication: MUSCLE SPASMS
     Dosage: 10 MG, 2X/DAY, ORAL
     Route: 048
  3. ARMOUR THYROID [Concomitant]
     Active Substance: THYROID, PORCINE\THYROID, UNSPECIFIED
  4. CYCLOBENZAPRINE HCL [Suspect]
     Active Substance: CYCLOBENZAPRINE HYDROCHLORIDE
     Indication: MUSCLE SPASMS
     Dosage: 10 MG, 2X/DAY, ORAL
     Route: 048
  5. CYCLOBENZAPRINE HCL [Suspect]
     Active Substance: CYCLOBENZAPRINE HYDROCHLORIDE
     Indication: MULTIPLE SCLEROSIS
     Dosage: 10 MG, 2X/DAY, ORAL
     Route: 048
  6. LIPITOR [Concomitant]
     Active Substance: ATORVASTATIN CALCIUM
  7. CYCLOBENZAPRINE HCL [Suspect]
     Active Substance: CYCLOBENZAPRINE HYDROCHLORIDE
     Indication: MULTIPLE SCLEROSIS
     Dosage: 10 MG, 2X/DAY, ORAL
     Route: 048

REACTIONS (10)
  - Condition aggravated [None]
  - Medical device complication [None]
  - Tremor [None]
  - Weight increased [None]
  - Cardiac pacemaker insertion [None]
  - Heart rate increased [None]
  - Multiple sclerosis relapse [None]
  - Muscle spasms [None]
  - Cold sweat [None]
  - Heart rate decreased [None]

NARRATIVE: CASE EVENT DATE: 201205
